FAERS Safety Report 5085151-3 (Version None)
Quarter: 2006Q3

REPORT INFORMATION
  Report Type: 
  Country: None (occurrence: None)
  Receive Date: 20060720
  Receipt Date: 20060228
  Transmission Date: 20061208
  Serious: Yes (Hospitalization, Other)
  Sender: FDA-Public Use
  Company Number: 2005067516

PATIENT
  Age: 47 Year
  Sex: Female
  Weight: 113.2 kg

DRUGS (10)
  1. CELEBREX [Suspect]
     Indication: INFLAMMATION
     Dosage: 200 MG (200 MG,1 IN 1 D),ORAL
     Route: 048
     Dates: start: 20000614, end: 20050302
  2. CELEBREX [Suspect]
     Indication: MUSCULOSKELETAL CHEST PAIN
     Dosage: 200 MG (200 MG,1 IN 1 D),ORAL
     Route: 048
     Dates: start: 20000614, end: 20050302
  3. CELEBREX [Suspect]
     Indication: OSTEOPOROSIS
     Dosage: 200 MG (200 MG,1 IN 1 D),ORAL
     Route: 048
     Dates: start: 20000614, end: 20050302
  4. PREVACID (PANTOPRAZOLE) [Concomitant]
  5. PROCARDIA XL [Concomitant]
  6. ZIAC [Concomitant]
  7. ZESTRIL [Concomitant]
  8. ASPIRIN [Concomitant]
  9. GLUCOPHAGE [Concomitant]
  10. TRICOR [Concomitant]

REACTIONS (2)
  - CORONARY ARTERY OCCLUSION [None]
  - MYOCARDIAL INFARCTION [None]
